FAERS Safety Report 6521004-9 (Version None)
Quarter: 2009Q4

REPORT INFORMATION
  Report Type: 
  Country: None (occurrence: None)
  Receive Date: 20091229
  Receipt Date: 20091223
  Transmission Date: 20100525
  Serious: Yes (Hospitalization)
  Sender: FDA-Public Use
  Company Number: US-GILEAD-2009-0026207

PATIENT
  Sex: Male
  Weight: 71.4 kg

DRUGS (9)
  1. LETAIRIS [Suspect]
     Indication: PULMONARY ARTERIAL HYPERTENSION
     Route: 048
     Dates: start: 20091103
  2. REVATIO [Concomitant]
     Indication: PULMONARY ARTERIAL HYPERTENSION
  3. PROTONIX [Concomitant]
  4. LASIX [Concomitant]
  5. AZATHIOPRINE [Concomitant]
  6. PRAVASTATIN [Concomitant]
  7. ACTONEL [Concomitant]
  8. SPIRONOLACTONE [Concomitant]
  9. VITAMIN D [Concomitant]

REACTIONS (1)
  - PNEUMONIA [None]
